FAERS Safety Report 11198834 (Version 1)
Quarter: 2015Q2

REPORT INFORMATION
  Report Type: Spontaneous
  Country: US (occurrence: US)
  Receive Date: 20150618
  Receipt Date: 20150618
  Transmission Date: 20150821
  Serious: No
  Sender: FDA-Public Use
  Company Number: US-MYLANLABS-2015M1009699

PATIENT
  Age: 83 Year
  Sex: Female
  Weight: 77.98 kg

DRUGS (1)
  1. POTASSIUM CHLORIDE EXTENDED-RELEASE TABLETS, USP [Suspect]
     Active Substance: POTASSIUM CHLORIDE
     Indication: HYPOKALAEMIA
     Dosage: 10 MEQ, QD
     Route: 048
     Dates: start: 201501

REACTIONS (2)
  - Wrong technique in drug usage process [Not Recovered/Not Resolved]
  - Foreign body [Not Recovered/Not Resolved]

NARRATIVE: CASE EVENT DATE: 201501
